FAERS Safety Report 18942789 (Version 1)
Quarter: 2021Q1

REPORT INFORMATION
  Report Type: Report from Study
  Country: None (occurrence: PL)
  Receive Date: 20210225
  Receipt Date: 20210225
  Transmission Date: 20210420
  Serious: Yes (Hospitalization)
  Sender: FDA-Public Use
  Company Number: PL-ABBVIE-21K-129-3789839-00

PATIENT
  Age: 64 Year
  Sex: Female

DRUGS (4)
  1. ROPINIROLE HYDROCHLORIDE. [Concomitant]
     Active Substance: ROPINIROLE HYDROCHLORIDE
     Indication: PARKINSON^S DISEASE
  2. DUODOPA [Suspect]
     Active Substance: CARBIDOPA\LEVODOPA
     Dosage: 4.5 ML MORNING DOSE, EXTRA DOSE 1.0ML, CONTINUOUS DOSE 2.6 ML / H
     Route: 050
  3. CLOZAPINE. [Concomitant]
     Active Substance: CLOZAPINE
     Indication: HALLUCINATION, VISUAL
  4. DUODOPA [Suspect]
     Active Substance: CARBIDOPA\LEVODOPA
     Indication: PARKINSON^S DISEASE
     Dosage: 4.5 ML MORNING DOSE, EXTRA DOSE 1.0ML, CONTINUOUS DOSE 2.5 ML / H
     Route: 050
     Dates: start: 2019

REACTIONS (2)
  - Chorea [Recovered/Resolved]
  - Device dislocation [Recovered/Resolved]
